FAERS Safety Report 20880504 (Version 1)
Quarter: 2022Q2

REPORT INFORMATION
  Report Type: Spontaneous
  Country: US (occurrence: US)
  Receive Date: 20220526
  Receipt Date: 20220526
  Transmission Date: 20220721
  Serious: Yes (Other)
  Sender: FDA-Public Use
  Company Number: US-BAUSCH-BL-2022-012321

PATIENT
  Age: 64 Year
  Sex: Male
  Weight: 85 kg

DRUGS (1)
  1. MESTINON [Suspect]
     Active Substance: PYRIDOSTIGMINE BROMIDE
     Indication: Product used for unknown indication
     Route: 065

REACTIONS (4)
  - Myasthenia gravis [Unknown]
  - Symptom recurrence [Unknown]
  - Dehydration [Recovered/Resolved]
  - Hyperhidrosis [Not Recovered/Not Resolved]
